FAERS Safety Report 24790543 (Version 1)
Quarter: 2024Q4

REPORT INFORMATION
  Report Type: Spontaneous
  Country: EG (occurrence: EG)
  Receive Date: 20241230
  Receipt Date: 20241230
  Transmission Date: 20250114
  Serious: No
  Sender: SANDOZ
  Company Number: EG-SANDOZ-SDZ2024EG105855

PATIENT
  Sex: Female

DRUGS (1)
  1. OMNITROPE [Suspect]
     Active Substance: SOMATROPIN
     Indication: Short stature
     Dosage: UNKNOWN
     Route: 058
     Dates: start: 2019

REACTIONS (4)
  - Expired device used [Unknown]
  - Drug administered in wrong device [Unknown]
  - Circumstance or information capable of leading to device use error [Unknown]
  - Device malfunction [Unknown]
